FAERS Safety Report 12064799 (Version 1)
Quarter: 2016Q1

REPORT INFORMATION
  Report Type: Spontaneous
  Country: US (occurrence: US)
  Receive Date: 20160210
  Receipt Date: 20160210
  Transmission Date: 20160526
  Serious: Yes (Other)
  Sender: FDA-Public Use
  Company Number: US-TEVA-633147USA

PATIENT
  Sex: Female
  Weight: 5.95 kg

DRUGS (4)
  1. BUDESONIDE. [Suspect]
     Active Substance: BUDESONIDE
     Indication: WHEEZING
     Route: 055
     Dates: start: 20160202
  2. AZITHROMYCIN ANHYDROUS. [Concomitant]
     Active Substance: AZITHROMYCIN ANHYDROUS
     Indication: WHEEZING
     Dates: start: 20160202
  3. BUDESONIDE. [Suspect]
     Active Substance: BUDESONIDE
     Indication: DYSPNOEA
  4. AZITHROMYCIN ANHYDROUS. [Concomitant]
     Active Substance: AZITHROMYCIN ANHYDROUS
     Indication: DYSPNOEA

REACTIONS (6)
  - Chest discomfort [Unknown]
  - Product use issue [Unknown]
  - Respiratory arrest [Unknown]
  - Drug administered to patient of inappropriate age [Unknown]
  - Dark circles under eyes [Unknown]
  - Pallor [Unknown]
